FAERS Safety Report 17229975 (Version 1)
Quarter: 2019Q4

REPORT INFORMATION
  Report Type: Spontaneous
  Country: US (occurrence: US)
  Receive Date: 20191210
  Receipt Date: 20191210
  Transmission Date: 20200122
  Serious: No
  Sender: FDA-Public Use
  Company Number: None

PATIENT
  Age: 58 Year
  Sex: Female

DRUGS (1)
  1. IMATINIB MESYLATE 400MG TEVA PHARMACEUTICALS USA [Suspect]
     Active Substance: IMATINIB MESYLATE
     Indication: LEUKAEMIA
     Dosage: ?          OTHER DOSE:1 TABLET;?
     Route: 048
     Dates: start: 201911

REACTIONS (2)
  - Diarrhoea [None]
  - Rash [None]

NARRATIVE: CASE EVENT DATE: 20191203
